FAERS Safety Report 8119042 (Version 5)
Quarter: 2013Q3

REPORT INFORMATION
  Report Type: Report from Study
  Country: IN (occurrence: IN)
  Receive Date: 20110902
  Receipt Date: 20130719
  Transmission Date: 20140515
  Serious: Yes (Other)
  Sender: FDA-Public Use
  Company Number: PHHY2011IN75907

PATIENT
  Age: 40 Year
  Sex: Male

DRUGS (3)
  1. GLIVEC [Suspect]
     Indication: CHRONIC MYELOID LEUKAEMIA
     Dosage: 400 MG
     Route: 048
  2. GLIVEC [Suspect]
     Dosage: 600 MG
     Route: 048
     Dates: end: 20110824
  3. GLIVEC [Suspect]
     Dosage: 600 MG, PER DAY
     Route: 048
     Dates: start: 20130712

REACTIONS (6)
  - Furuncle [Unknown]
  - Vertigo [Recovered/Resolved]
  - Viral infection [Recovered/Resolved]
  - Malaise [Recovered/Resolved]
  - Pyrexia [Recovered/Resolved]
  - Full blood count decreased [Recovered/Resolved]
